FAERS Safety Report 7794119-5 (Version None)
Quarter: 2011Q4

REPORT INFORMATION
  Report Type: 
  Country: None (occurrence: None)
  Receive Date: 20111004
  Receipt Date: 20110926
  Transmission Date: 20120403
  Serious: Yes (Life-Threatening, Other)
  Sender: FDA-Public Use
  Company Number: JP-GENZYME-THYM-1002694

PATIENT
  Sex: Male
  Weight: 82.6 kg

DRUGS (15)
  1. BENZBROMARONE [Concomitant]
     Indication: HYPERURICAEMIA
     Dosage: 50 MG, QD
  2. THYMOGLOBULIN [Suspect]
     Indication: KIDNEY TRANSPLANT REJECTION
     Dosage: 1.5 MG/KG, QD
     Route: 042
     Dates: start: 20110804, end: 20110805
  3. METHYLPREDNISOLONE SODIUM SUCCINATE [Concomitant]
     Indication: KIDNEY TRANSPLANT REJECTION
     Dosage: 500 MG, QD
     Dates: start: 20110727
  4. METHYLPREDNISOLONE SODIUM SUCCINATE [Concomitant]
     Dosage: 160 MG, UNK
     Dates: start: 20110804
  5. IMMUNOGLOBULIN HUMAN NORMAL [Concomitant]
     Indication: KIDNEY TRANSPLANT REJECTION
     Dosage: 15 G, QD
     Dates: start: 20110727
  6. TACROLIMUS [Concomitant]
     Indication: TRANSPLANT REJECTION
     Dosage: UNK
     Dates: start: 20100902
  7. LANSOPRAZOLE [Concomitant]
     Indication: PRODUCT USED FOR UNKNOWN INDICATION
     Dosage: 15 MG, QD
  8. OLMESARTAN MEDOXOMIL [Concomitant]
     Indication: HYPERTENSION
     Dosage: 20 MG, QD
  9. MOXIFLOXACIN HYDROCHLORIDE [Concomitant]
     Indication: PROPHYLAXIS
     Dosage: 400 MG, QD
     Dates: start: 20110728, end: 20110811
  10. SODIUM CHLORIDE INJ [Concomitant]
     Indication: PRODUCT USED FOR UNKNOWN INDICATION
     Dosage: 100 ML, UNK
     Dates: start: 20110804
  11. DIPHENHYDRAMINE HYDROCHLORIDE [Concomitant]
     Indication: PRODUCT USED FOR UNKNOWN INDICATION
     Dosage: UNK
     Route: 048
  12. GUSPERIMUS HYDROCHLORIDE [Concomitant]
     Indication: KIDNEY TRANSPLANT REJECTION
     Dosage: 400 MG, QD
     Dates: start: 20110802, end: 20110803
  13. MYCOPHENOLATE MOFETIL [Concomitant]
     Indication: TRANSPLANT REJECTION
     Dosage: 250 MG, BID
     Dates: start: 20100902
  14. CALCIUM POLYSTYRENE SULFONATE [Concomitant]
     Indication: HYPERKALAEMIA
     Dosage: 5 G, TID
     Dates: start: 20110812
  15. ACETAMINOPHEN [Concomitant]
     Indication: PRODUCT USED FOR UNKNOWN INDICATION
     Dosage: UNK
     Dates: start: 20110804

REACTIONS (4)
  - BLOOD PRESSURE DECREASED [None]
  - PYREXIA [None]
  - PHLEBITIS [None]
  - CHILLS [None]
